FAERS Safety Report 13656094 (Version 3)
Quarter: 2017Q3

REPORT INFORMATION
  Report Type: Report from Study
  Country: US (occurrence: US)
  Receive Date: 20170615
  Receipt Date: 20170803
  Transmission Date: 20171127
  Serious: Yes (Other)
  Sender: FDA-Public Use
  Company Number: US-BIOGEN-2017BI00417096

PATIENT
  Sex: Female

DRUGS (1)
  1. ZINBRYTA [Suspect]
     Active Substance: DACLIZUMAB
     Indication: MULTIPLE SCLEROSIS
     Route: 065
     Dates: start: 20170303

REACTIONS (4)
  - Paranoia [Unknown]
  - Cytogenetic abnormality [Unknown]
  - Schizophrenia [Unknown]
  - Systemic lupus erythematosus [Not Recovered/Not Resolved]
